FAERS Safety Report 7271172-9 (Version None)
Quarter: 2011Q1

REPORT INFORMATION
  Report Type: 
  Country: None (occurrence: None)
  Receive Date: 20110202
  Receipt Date: 20110128
  Transmission Date: 20110831
  Serious: No
  Sender: FDA-Public Use
  Company Number: US-PFIZER INC-2010173035

PATIENT
  Age: 57 Year
  Sex: Female
  Weight: 81.633 kg

DRUGS (1)
  1. ADVIL CONGESTION RELIEF [Suspect]
     Indication: NASAL CONGESTION
     Dosage: 1 TAB, EVERY 4 HRS, TOTAL OF 3
     Route: 048
     Dates: start: 20101201, end: 20101209

REACTIONS (1)
  - DRUG INEFFECTIVE [None]
